FAERS Safety Report 8585888-5 (Version None)
Quarter: 2012Q3

REPORT INFORMATION
  Report Type: 
  Country: None (occurrence: None)
  Receive Date: 20120810
  Receipt Date: 20120803
  Transmission Date: 20120928
  Serious: Yes (Other)
  Sender: FDA-Public Use
  Company Number: JP-VERTEX PHARMACEUTICALS INC.-AE-2012-006993

PATIENT
  Age: 62 Year
  Sex: Female

DRUGS (12)
  1. RIBAVIRIN [Concomitant]
     Indication: HEPATITIS C
     Route: 048
     Dates: start: 20120214, end: 20120305
  2. PROMAC [Concomitant]
     Route: 048
     Dates: start: 20120214
  3. MOTILIUM [Concomitant]
     Route: 048
     Dates: end: 20120416
  4. CINAL [Concomitant]
     Route: 048
     Dates: start: 20120214
  5. RIBAVIRIN [Concomitant]
     Route: 048
     Dates: start: 20120327
  6. JUVELA N [Concomitant]
     Route: 048
     Dates: start: 20120214
  7. LANSOPRAZOLE [Concomitant]
     Route: 048
  8. TELAVIC [Suspect]
     Route: 048
     Dates: start: 20120313, end: 20120409
  9. RIBAVIRIN [Concomitant]
     Route: 048
     Dates: start: 20120306, end: 20120326
  10. PEGINTERFERON ALFA-2B [Concomitant]
     Route: 051
     Dates: start: 20120214
  11. TELAVIC [Suspect]
     Indication: HEPATITIS C
     Route: 048
     Dates: start: 20120214, end: 20120312
  12. LOXONIN [Concomitant]
     Route: 048
     Dates: start: 20120214, end: 20120224

REACTIONS (1)
  - SKIN EXFOLIATION [None]
